FAERS Safety Report 5260276-8 (Version None)
Quarter: 2007Q1

REPORT INFORMATION
  Report Type: 
  Country: None (occurrence: None)
  Receive Date: 20070309
  Receipt Date: 20060616
  Transmission Date: 20070707
  Serious: No
  Sender: FDA-Public Use
  Company Number: US-GLAXOSMITHKLINE-A0609109A

PATIENT
  Age: 35 Year

DRUGS (1)
  1. NICORETTE [Suspect]
     Indication: DRUG USE FOR UNKNOWN INDICATION
     Dates: start: 20060615, end: 20060615

REACTIONS (2)
  - DYSGEUSIA [None]
  - HYPOAESTHESIA ORAL [None]
